FAERS Safety Report 24281923 (Version 1)
Quarter: 2024Q3

REPORT INFORMATION
  Report Type: Spontaneous
  Country: EG (occurrence: EG)
  Receive Date: 20240904
  Receipt Date: 20240904
  Transmission Date: 20241017
  Serious: Yes (Other)
  Sender: CHEPLAPHARM
  Company Number: EG-ROCHE-10000061552

PATIENT
  Age: 45 Year
  Sex: Female

DRUGS (19)
  1. CAPECITABINE [Suspect]
     Active Substance: CAPECITABINE
     Indication: Breast cancer
     Dosage: 2 EVERY 3 WEEKS
     Route: 048
     Dates: start: 20200930, end: 20211017
  2. HERCEPTIN [Suspect]
     Active Substance: TRASTUZUMAB
     Indication: Breast cancer
     Route: 042
     Dates: start: 20190324, end: 20190414
  3. HERCEPTIN [Suspect]
     Active Substance: TRASTUZUMAB
     Indication: Breast cancer
     Route: 058
     Dates: start: 20190513, end: 20200901
  4. TAXOL [Suspect]
     Active Substance: PACLITAXEL
     Indication: Breast cancer
     Route: 042
     Dates: start: 20190324, end: 20190908
  5. GEMZAR [Suspect]
     Active Substance: GEMCITABINE HYDROCHLORIDE
     Indication: Breast cancer
     Dosage: THEN 1 IN 21 DAYS
     Route: 042
     Dates: start: 20211110, end: 20221220
  6. TYKERB [Suspect]
     Active Substance: LAPATINIB DITOSYLATE
     Indication: Breast cancer
     Dosage: DAILY DOSE: 1250 MILLIGRAM
     Route: 048
     Dates: start: 20200930, end: 20211017
  7. PARAPLATIN [Suspect]
     Active Substance: CARBOPLATIN
     Indication: Breast cancer
     Route: 042
     Dates: start: 20211110, end: 20231220
  8. UREA [Concomitant]
     Active Substance: UREA
     Route: 061
     Dates: start: 20201203, end: 20201217
  9. IBUPROFEN [Concomitant]
     Active Substance: IBUPROFEN
     Route: 048
     Dates: start: 20211211, end: 20211224
  10. CELECOXIB [Concomitant]
     Active Substance: CELECOXIB
     Dosage: DAILY DOSE: 200 MILLIGRAM
     Route: 048
     Dates: start: 20220906, end: 20220915
  11. AMOXICILLIN AND CLAVULANATE POTASSIUM [Concomitant]
     Active Substance: AMOXICILLIN\CLAVULANATE POTASSIUM
     Dosage: BID?DAILY DOSE: 2 GRAM
     Route: 048
     Dates: start: 20220906, end: 20220912
  12. ACETAMINOPHEN [Concomitant]
     Active Substance: ACETAMINOPHEN
     Route: 048
     Dates: start: 20221012, end: 20221018
  13. METRONIDAZOLE [Concomitant]
     Active Substance: METRONIDAZOLE
     Dosage: DAILY DOSE: 1000 MILLIGRAM
     Route: 048
     Dates: start: 20221012, end: 20221018
  14. TRAMADOL [Concomitant]
     Active Substance: TRAMADOL\TRAMADOL HYDROCHLORIDE
     Dosage: DAILY DOSE: 100 MILLIGRAM
     Route: 048
     Dates: start: 20230226, end: 20230326
  15. DEXAMETHASONE [Concomitant]
     Active Substance: DEXAMETHASONE
     Dosage: BID
     Route: 048
     Dates: start: 20231115, end: 20231119
  16. PREGABALIN [Concomitant]
     Active Substance: PREGABALIN
     Dosage: DAILY DOSE: 75 MILLIGRAM
     Route: 048
     Dates: start: 20231115, end: 20231205
  17. AZITHROMYCIN [Concomitant]
     Active Substance: AZITHROMYCIN
     Dosage: DAILY DOSE: 4.5 GRAM
     Route: 042
     Dates: start: 20231231, end: 20240116
  18. BUDESONIDE [Concomitant]
     Active Substance: BUDESONIDE
     Dates: start: 20240105, end: 20240116
  19. PHENYTOIN [Concomitant]
     Active Substance: PHENYTOIN
     Dates: start: 20240111, end: 20240116

REACTIONS (3)
  - Asthenia [Unknown]
  - Paraplegia [Unknown]
  - Dehydration [Unknown]

NARRATIVE: CASE EVENT DATE: 20231220
